FAERS Safety Report 4579263-8 (Version None)
Quarter: 2005Q1

REPORT INFORMATION
  Report Type: 
  Country: None (occurrence: None)
  Receive Date: 20050209
  Receipt Date: 20050209
  Transmission Date: 20050727
  Serious: Yes (Other)
  Sender: FDA-Public Use
  Company Number: None

PATIENT
  Age: 74 Year
  Sex: Male
  Weight: 88.905 kg

DRUGS (1)
  1. TERAZOSIN [Suspect]
     Indication: PROSTATIC DISORDER
     Dosage: 4 MG PO QD
     Route: 048

REACTIONS (1)
  - DIARRHOEA [None]
